FAERS Safety Report 17241850 (Version 1)
Quarter: 2020Q1

REPORT INFORMATION
  Report Type: Report from Study
  Country: None (occurrence: US)
  Receive Date: 20200107
  Receipt Date: 20200107
  Transmission Date: 20200409
  Serious: Yes (Hospitalization)
  Sender: FDA-Public Use
  Company Number: US-ABBVIE-20P-163-3219977-00

PATIENT
  Age: 67 Year
  Sex: Female

DRUGS (3)
  1. MILK THISTLE [Concomitant]
     Active Substance: DIETARY SUPPLEMENT\HERBALS\MILK THISTLE
     Indication: PRODUCT USED FOR UNKNOWN INDICATION
  2. IMBRUVICA [Suspect]
     Active Substance: IBRUTINIB
     Indication: CHRONIC LYMPHOCYTIC LEUKAEMIA
     Route: 048
     Dates: start: 20190910
  3. DANDELION ROOT [Concomitant]
     Indication: PRODUCT USED FOR UNKNOWN INDICATION

REACTIONS (5)
  - Peripheral swelling [Unknown]
  - Pain in extremity [Unknown]
  - Pain [Unknown]
  - Skin discolouration [Unknown]
  - Arthropod bite [Unknown]

NARRATIVE: CASE EVENT DATE: 20191209
